FAERS Safety Report 16809989 (Version 2)
Quarter: 2021Q2

REPORT INFORMATION
  Report Type: Spontaneous
  Country: SG (occurrence: SG)
  Receive Date: 20190916
  Receipt Date: 20210406
  Transmission Date: 20210716
  Serious: Yes (Hospitalization, Other)
  Sender: FDA-Public Use
  Company Number: SG-CELGENEUS-SGP-2015043546

PATIENT
  Age: 74 Year
  Sex: Female
  Weight: 46 kg

DRUGS (3)
  1. DEXAMETHASONE. [Suspect]
     Active Substance: DEXAMETHASONE
     Indication: PLASMA CELL MYELOMA
     Dosage: 40 MILLIGRAM
     Route: 048
     Dates: start: 20131210, end: 20140522
  2. LENALIDOMIDE [Suspect]
     Active Substance: LENALIDOMIDE
     Indication: PLASMA CELL MYELOMA
     Dosage: 15 MILLIGRAM
     Route: 048
     Dates: start: 20131210, end: 20140523
  3. MLN9708 [Suspect]
     Active Substance: IXAZOMIB
     Indication: PLASMA CELL MYELOMA
     Dosage: 3 MILLIGRAM
     Route: 048
     Dates: start: 20131210, end: 20140522

REACTIONS (1)
  - Pancreatic carcinoma metastatic [Not Recovered/Not Resolved]

NARRATIVE: CASE EVENT DATE: 20141212
